FAERS Safety Report 19507689 (Version 1)
Quarter: 2021Q3

REPORT INFORMATION
  Report Type: Spontaneous
  Country: FR (occurrence: FR)
  Receive Date: 20210708
  Receipt Date: 20210708
  Transmission Date: 20211014
  Serious: Yes (Hospitalization)
  Sender: FDA-Public Use
  Company Number: FR-MYLANLABS-2021M1038951

PATIENT
  Age: 81 Year
  Sex: Female
  Weight: 40 kg

DRUGS (7)
  1. LOXAPAC                            /00401802/ [Suspect]
     Active Substance: LOXAPINE SUCCINATE
     Indication: PSYCHOTIC DISORDER
     Dosage: 60 MILLILITER, QD
     Route: 048
  2. DIFFU K [Concomitant]
     Active Substance: POTASSIUM CHLORIDE
     Indication: HYPOKALAEMIA
     Dosage: 1200 MILLIGRAM, QD
     Route: 048
  3. SERESTA [Concomitant]
     Active Substance: OXAZEPAM
     Indication: GENERALISED ANXIETY DISORDER
     Dosage: UNK
     Route: 048
  4. LOVENOX [Concomitant]
     Active Substance: ENOXAPARIN SODIUM
     Indication: DEEP VEIN THROMBOSIS
     Dosage: 0.4 MILLILITER, QD
     Route: 065
  5. TERCIAN                            /00759302/ [Suspect]
     Active Substance: CYAMEMAZINE
     Indication: MAJOR DEPRESSION
     Dosage: 10ML MATIN ET MIDI ET 20ML LE SOIR
     Route: 048
  6. CITALOPRAM [Suspect]
     Active Substance: CITALOPRAM HYDROBROMIDE
     Indication: MAJOR DEPRESSION
     Dosage: 20 MILLIGRAM, QD
     Route: 048
  7. SERESTA [Concomitant]
     Active Substance: OXAZEPAM
     Indication: GENERALISED ANXIETY DISORDER
     Dosage: 20 MILLIGRAM, QD
     Route: 048

REACTIONS (2)
  - Constipation [Recovered/Resolved]
  - Faecal vomiting [Recovered/Resolved]

NARRATIVE: CASE EVENT DATE: 20190218
